FAERS Safety Report 4503036-5 (Version None)
Quarter: 2004Q4

REPORT INFORMATION
  Report Type: 
  Country: None (occurrence: None)
  Receive Date: 20041116
  Receipt Date: 20041116
  Transmission Date: 20050328
  Serious: Yes (Hospitalization)
  Sender: FDA-Public Use
  Company Number: None

PATIENT
  Age: 64 Year
  Sex: Male

DRUGS (20)
  1. WARFARIN/HEPARIN [Suspect]
     Indication: THROMBOSIS
     Dosage: VARIES
  2. IBUPROFEN [Suspect]
     Dosage: 600 MG TID
  3. ASPRIN 81 MG DAILY [Suspect]
  4. FUROSEMIDE [Concomitant]
  5. VALSARTAN [Concomitant]
  6. BACITRACIN ZINC-POLYMYXIN B SULFATE [Concomitant]
  7. MENTHOL 2/ METHYL SALICYLATE [Concomitant]
  8. ACCU-CHEK COMFORT CV (GLUCOSE) TEST STRIPS [Concomitant]
  9. SENNOSIDES [Concomitant]
  10. HUMULIN N [Concomitant]
  11. HUMULIN R [Concomitant]
  12. NOVOLIN R [Concomitant]
  13. IBUPROFEN [Concomitant]
  14. FERROUS SO4 [Concomitant]
  15. GAUZE PAD [Concomitant]
  16. GAUZE, PETROLATUM [Concomitant]
  17. ALCOHOL PREP PAD [Concomitant]
  18. KERLIX [Concomitant]
  19. TAPE, PAPER [Concomitant]
  20. INSULIN SYRG [Concomitant]

REACTIONS (1)
  - HAEMATURIA [None]
